FAERS Safety Report 4517804-7 (Version None)
Quarter: 2004Q4

REPORT INFORMATION
  Report Type: 
  Country: None (occurrence: None)
  Receive Date: 20041201
  Receipt Date: 20041201
  Transmission Date: 20050328
  Serious: Yes (Other)
  Sender: FDA-Public Use
  Company Number: None

PATIENT
  Age: 59 Year
  Sex: Female

DRUGS (3)
  1. REGLAN [Suspect]
     Dosage: 10 MG
     Dates: start: 20041123
  2. LEVAQUIN [Suspect]
  3. ZANTAC [Suspect]
     Route: 042

REACTIONS (3)
  - PRURITUS GENERALISED [None]
  - RASH [None]
  - URTICARIA [None]
